FAERS Safety Report 15290047 (Version 2)
Quarter: 2018Q3

REPORT INFORMATION
  Report Type: Spontaneous
  Country: US (occurrence: US)
  Receive Date: 20180817
  Receipt Date: 20180906
  Transmission Date: 20181010
  Serious: Yes (Death, Other)
  Sender: FDA-Public Use
  Company Number: US-SA-2018SA162883

PATIENT
  Age: 74 Year
  Sex: Male

DRUGS (2)
  1. CLOPIDOGREL BISULFATE. [Suspect]
     Active Substance: CLOPIDOGREL BISULFATE
  2. ACETYLSALICYLIC ACID [Suspect]
     Active Substance: ASPIRIN

REACTIONS (6)
  - Cerebral amyloid angiopathy [Fatal]
  - Cerebral haemorrhage [Fatal]
  - Unresponsive to stimuli [Fatal]
  - Dyspnoea [Fatal]
  - Headache [Fatal]
  - Vomiting [Fatal]
